FAERS Safety Report 18419145 (Version 1)
Quarter: 2020Q4

REPORT INFORMATION
  Report Type: Spontaneous
  Country: US (occurrence: US)
  Receive Date: 20201023
  Receipt Date: 20201023
  Transmission Date: 20210114
  Serious: No
  Sender: FDA-Public Use
  Company Number: US-SUNOVION-2020SUN002955

PATIENT
  Age: 50 Year
  Sex: Male

DRUGS (1)
  1. LATUDA [Suspect]
     Active Substance: LURASIDONE HYDROCHLORIDE
     Indication: BIPOLAR II DISORDER
     Dosage: 20 MG, BID
     Route: 048

REACTIONS (3)
  - Therapeutic response unexpected [Unknown]
  - Visual impairment [Unknown]
  - Off label use [Unknown]
